FAERS Safety Report 4915040-3 (Version None)
Quarter: 2006Q1

REPORT INFORMATION
  Report Type: 
  Country: None (occurrence: None)
  Receive Date: 20060215
  Receipt Date: 20060215
  Transmission Date: 20060701
  Serious: Yes (Life-Threatening, Other)
  Sender: FDA-Public Use
  Company Number: None

PATIENT
  Sex: Male
  Weight: 94 kg

DRUGS (1)
  1. TEMOZOLOMIDE    75 MG/M2    SCHERING PLOUGH [Suspect]
     Indication: ASTROCYTOMA
     Dosage: 75 MG/M2    X 49 DAYS   PO
     Route: 048
     Dates: start: 20050429, end: 20060209

REACTIONS (5)
  - CONTUSION [None]
  - HAEMORRHAGE [None]
  - HERPES VIRUS INFECTION [None]
  - MOUTH ULCERATION [None]
  - THROMBOCYTOPENIA [None]
